FAERS Safety Report 4882949-9 (Version None)
Quarter: 2006Q1

REPORT INFORMATION
  Report Type: 
  Country: None (occurrence: None)
  Receive Date: 20060118
  Receipt Date: 20060113
  Transmission Date: 20060701
  Serious: Yes (Disabling)
  Sender: FDA-Public Use
  Company Number: JP-BOEHRINGER INGELHEIM PHARMACEUTICALS, INC.-2006-BP-00379NB

PATIENT
  Age: 75 Year
  Sex: Female

DRUGS (2)
  1. MOBIC [Suspect]
     Indication: OSTEOARTHRITIS
     Route: 048
     Dates: start: 20051125, end: 20051208
  2. ANTIHYPERTENSIVE DRUG [Concomitant]
     Route: 065

REACTIONS (1)
  - ULCER HAEMORRHAGE [None]
